FAERS Safety Report 17872184 (Version 2)
Quarter: 2020Q2

REPORT INFORMATION
  Report Type: Report from Study
  Country: US (occurrence: US)
  Receive Date: 20200608
  Receipt Date: 20200622
  Transmission Date: 20200714
  Serious: Yes (Other)
  Sender: FDA-Public Use
  Company Number: US-JNJFOC-20200604469

PATIENT
  Age: 61 Year
  Sex: Female

DRUGS (1)
  1. ELMIRON [Suspect]
     Active Substance: PENTOSAN POLYSULFATE SODIUM
     Indication: PRODUCT USED FOR UNKNOWN INDICATION
     Dosage: THE PATIENT^S DAILY DOSE OF PENTOSAN POLYSULFATE SODIUM BY BODY WEIGHT WAS 5.8 MG/KG
     Route: 048

REACTIONS (1)
  - Maculopathy [Unknown]
